FAERS Safety Report 18230651 (Version 1)
Quarter: 2020Q3

REPORT INFORMATION
  Report Type: Spontaneous
  Country: CA (occurrence: CA)
  Receive Date: 20200904
  Receipt Date: 20200904
  Transmission Date: 20201103
  Serious: Yes (Other)
  Sender: FDA-Public Use
  Company Number: CA-TEVA-2020-CA-1821612

PATIENT
  Sex: Female

DRUGS (7)
  1. MORPHINE SULFATE. [Suspect]
     Active Substance: MORPHINE SULFATE
     Route: 065
  2. CEPHALEXIN. [Suspect]
     Active Substance: CEPHALEXIN
     Route: 065
  3. DEMEROL [Suspect]
     Active Substance: MEPERIDINE HYDROCHLORIDE
     Route: 065
  4. IBRANCE [Concomitant]
     Active Substance: PALBOCICLIB
     Route: 065
  5. ZUACTA [Suspect]
     Active Substance: ZUCAPSAICIN
     Route: 065
  6. IBRANCE [Concomitant]
     Active Substance: PALBOCICLIB
     Route: 048
  7. PENICILLIN V POTASSIUM. [Concomitant]
     Active Substance: PENICILLIN V POTASSIUM
     Route: 065

REACTIONS (4)
  - Rash [Unknown]
  - Hallucination [Unknown]
  - Dyspnoea [Unknown]
  - Urticaria [Unknown]
